FAERS Safety Report 4956205-4 (Version None)
Quarter: 2006Q1

REPORT INFORMATION
  Report Type: 
  Country: None (occurrence: None)
  Receive Date: 20060329
  Receipt Date: 20060323
  Transmission Date: 20060701
  Serious: Yes (Hospitalization, Other)
  Sender: FDA-Public Use
  Company Number: JP-SP-2006-00686

PATIENT
  Age: 61 Year
  Sex: Male

DRUGS (2)
  1. IMMUCYST [Suspect]
     Indication: BLADDER CANCER
     Route: 043
     Dates: start: 20060101, end: 20060301
  2. ENOXACIN [Concomitant]

REACTIONS (5)
  - ABNORMAL BEHAVIOUR [None]
  - CEREBRAL HAEMORRHAGE [None]
  - INCONTINENCE [None]
  - METASTASES TO CENTRAL NERVOUS SYSTEM [None]
  - POLLAKIURIA [None]
